FAERS Safety Report 6566132-7 (Version None)
Quarter: 2010Q1

REPORT INFORMATION
  Report Type: 
  Country: None (occurrence: None)
  Receive Date: 20100202
  Receipt Date: 20100125
  Transmission Date: 20100710
  Serious: Yes (Other)
  Sender: FDA-Public Use
  Company Number: US-JNJFOC-20091008237

PATIENT
  Sex: Female
  Weight: 93.9 kg

DRUGS (3)
  1. DURAGESIC-100 [Suspect]
     Indication: PAIN
     Route: 062
  2. DURAGESIC-100 [Suspect]
     Indication: FIBROMYALGIA
     Route: 062
  3. FENTANYL [Suspect]
     Indication: PAIN
     Route: 062

REACTIONS (5)
  - BRONCHITIS [None]
  - DRUG ADMINISTERED AT INAPPROPRIATE SITE [None]
  - EAR INFECTION [None]
  - ERYTHEMA [None]
  - PRURITUS [None]
